FAERS Safety Report 5113835-7 (Version None)
Quarter: 2006Q3

REPORT INFORMATION
  Report Type: 
  Country: None (occurrence: None)
  Receive Date: 20060921
  Receipt Date: 20060921
  Transmission Date: 20061208
  Serious: Yes (Other)
  Sender: FDA-Public Use
  Company Number: None

PATIENT
  Sex: Female

DRUGS (24)
  1. OMEPRAZOLE [Suspect]
     Indication: GASTROOESOPHAGEAL REFLUX DISEASE
     Dosage: QD AND BID
     Dates: start: 19900101
  2. OMEPRAZOLE [Suspect]
     Indication: SARCOIDOSIS
     Dosage: QD AND BID
     Dates: start: 19900101
  3. OMEPRAZOLE [Suspect]
     Indication: GASTROOESOPHAGEAL REFLUX DISEASE
     Dosage: QD AND BID
     Dates: start: 19940101
  4. OMEPRAZOLE [Suspect]
     Indication: SARCOIDOSIS
     Dosage: QD AND BID
     Dates: start: 19940101
  5. OMEPRAZOLE [Suspect]
     Indication: GASTROOESOPHAGEAL REFLUX DISEASE
     Dosage: QD AND BID
     Dates: start: 19960101
  6. OMEPRAZOLE [Suspect]
     Indication: SARCOIDOSIS
     Dosage: QD AND BID
     Dates: start: 19960101
  7. PREVACID [Suspect]
     Indication: GASTROOESOPHAGEAL REFLUX DISEASE
     Dosage: QD AND BID
     Dates: start: 19900101
  8. PREVACID [Suspect]
     Indication: SARCOIDOSIS
     Dosage: QD AND BID
     Dates: start: 19900101
  9. PREVACID [Suspect]
     Indication: GASTROOESOPHAGEAL REFLUX DISEASE
     Dosage: QD AND BID
     Dates: start: 19940101
  10. PREVACID [Suspect]
     Indication: SARCOIDOSIS
     Dosage: QD AND BID
     Dates: start: 19940101
  11. PREVACID [Suspect]
     Indication: GASTROOESOPHAGEAL REFLUX DISEASE
     Dosage: QD AND BID
     Dates: start: 19960101
  12. PREVACID [Suspect]
     Indication: SARCOIDOSIS
     Dosage: QD AND BID
     Dates: start: 19960101
  13. PROTONIX [Suspect]
     Indication: ASTHMA
     Dosage: QD AND BID
     Dates: start: 19990101
  14. PROTONIX [Suspect]
     Indication: SINUSITIS
     Dosage: QD AND BID
     Dates: start: 19990101
  15. PROTONIX [Suspect]
     Indication: ASTHMA
     Dosage: QD AND BID
     Dates: start: 20020101
  16. PROTONIX [Suspect]
     Indication: SINUSITIS
     Dosage: QD AND BID
     Dates: start: 20020101
  17. PROTONIX [Suspect]
     Indication: ASTHMA
     Dosage: QD AND BID
     Dates: start: 20050101
  18. PROTONIX [Suspect]
     Indication: SINUSITIS
     Dosage: QD AND BID
     Dates: start: 20050101
  19. NEXIUM [Suspect]
     Indication: ASTHMA
     Dosage: QD AND BID
     Dates: start: 19990101
  20. NEXIUM [Suspect]
     Indication: SINUSITIS
     Dosage: QD AND BID
     Dates: start: 19990101
  21. NEXIUM [Suspect]
     Indication: ASTHMA
     Dosage: QD AND BID
     Dates: start: 20020101
  22. NEXIUM [Suspect]
     Indication: SINUSITIS
     Dosage: QD AND BID
     Dates: start: 20020101
  23. NEXIUM [Suspect]
     Indication: ASTHMA
     Dosage: QD AND BID
     Dates: start: 20050101
  24. NEXIUM [Suspect]
     Indication: SINUSITIS
     Dosage: QD AND BID
     Dates: start: 20050101

REACTIONS (1)
  - DRUG INEFFECTIVE [None]
